FAERS Safety Report 9047260 (Version 1)
Quarter: 2013Q1

REPORT INFORMATION
  Report Type: Report from Study
  Country: US (occurrence: US)
  Receive Date: 20130131
  Receipt Date: 20130131
  Transmission Date: 20140127
  Serious: Yes (Other)
  Sender: FDA-Public Use
  Company Number: US-ABBOTT-12P-163-0906089-00

PATIENT
  Sex: Female
  Weight: 71.73 kg

DRUGS (7)
  1. HUMIRA 40 MG/0.8 ML PEN [Suspect]
     Indication: CROHN^S DISEASE
     Route: 058
     Dates: start: 201001
  2. POTASSIUM [Concomitant]
     Indication: BLOOD POTASSIUM DECREASED
  3. UNKNOWN ANTIDIARRHEAL [Concomitant]
     Indication: PROPHYLAXIS AGAINST DIARRHOEA
  4. AZATHIOPRINE [Concomitant]
     Indication: CROHN^S DISEASE
  5. PENTASA [Concomitant]
     Indication: CROHN^S DISEASE
  6. FOLIC ACID [Concomitant]
     Indication: CROHN^S DISEASE
  7. CELAPRAM [Concomitant]
     Indication: DEPRESSION

REACTIONS (1)
  - Breast cancer female [Recovered/Resolved]
